FAERS Safety Report 4293116-4 (Version None)
Quarter: 2004Q1

REPORT INFORMATION
  Report Type: 
  Country: None (occurrence: None)
  Receive Date: 20040212
  Receipt Date: 20030319
  Transmission Date: 20041129
  Serious: No
  Sender: FDA-Public Use
  Company Number: US-GLAXOSMITHKLINE-A0401264A

PATIENT
  Sex: Female

DRUGS (5)
  1. PAXIL [Suspect]
     Indication: DEPRESSION
     Dosage: 20MG PER DAY
     Route: 048
     Dates: start: 20010201, end: 20030309
  2. PREVACID [Concomitant]
  3. MOBIC [Concomitant]
  4. LIPITOR [Concomitant]
  5. ASPIRIN [Concomitant]

REACTIONS (4)
  - HEPATIC ENZYME INCREASED [None]
  - HYPERHIDROSIS [None]
  - NAUSEA [None]
  - VOMITING [None]
